FAERS Safety Report 5811125-8 (Version None)
Quarter: 2008Q3

REPORT INFORMATION
  Report Type: 
  Country: None (occurrence: None)
  Receive Date: 20080716
  Receipt Date: 20080710
  Transmission Date: 20090109
  Serious: Yes (Death)
  Sender: FDA-Public Use
  Company Number: PHBS2008GB05064

PATIENT

DRUGS (3)
  1. CARBAMAZEPINE [Suspect]
     Route: 064
  2. ACETAZOLAMIDE [Suspect]
     Route: 064
  3. LAMOTRIGINE [Suspect]

REACTIONS (2)
  - DRUG EXPOSURE DURING PREGNANCY [None]
  - HEART DISEASE CONGENITAL [None]
